FAERS Safety Report 9127814 (Version 1)
Quarter: 2013Q1

REPORT INFORMATION
  Report Type: Spontaneous
  Country: US (occurrence: US)
  Receive Date: 20130228
  Receipt Date: 20130228
  Transmission Date: 20140127
  Serious: Yes (Hospitalization)
  Sender: FDA-Public Use
  Company Number: US-GLAXOSMITHKLINE-A1002520A

PATIENT
  Age: 59 Year
  Sex: Female

DRUGS (1)
  1. LAMICTAL [Suspect]
     Indication: PRODUCT USED FOR UNKNOWN INDICATION
     Dosage: 150MG UNKNOWN
     Route: 065
     Dates: start: 20070511

REACTIONS (1)
  - Convulsion [Unknown]
